FAERS Safety Report 12095232 (Version 1)
Quarter: 2016Q1

REPORT INFORMATION
  Report Type: Spontaneous
  Country: GB (occurrence: GB)
  Receive Date: 20160219
  Receipt Date: 20160219
  Transmission Date: 20160526
  Serious: Yes (Other)
  Sender: FDA-Public Use
  Company Number: GB-BIOGEN-2016BI00189392

PATIENT
  Age: 28 Year
  Sex: Female

DRUGS (2)
  1. TECFIDERA [Suspect]
     Active Substance: DIMETHYL FUMARATE
     Indication: MULTIPLE SCLEROSIS
     Route: 048
     Dates: end: 20160209
  2. TECFIDERA [Suspect]
     Active Substance: DIMETHYL FUMARATE
     Route: 048
     Dates: start: 20160121, end: 20160127

REACTIONS (17)
  - Retching [Recovered/Resolved]
  - Swelling [Not Recovered/Not Resolved]
  - Pain [Unknown]
  - Diarrhoea [Unknown]
  - Cardiac disorder [Unknown]
  - Adverse event [Unknown]
  - Gastrooesophageal reflux disease [Recovered/Resolved]
  - Inflammation [Not Recovered/Not Resolved]
  - Chest pain [Unknown]
  - Mobility decreased [Unknown]
  - Feeling hot [Unknown]
  - Feeling cold [Unknown]
  - Rash [Unknown]
  - Malaise [Unknown]
  - Aphasia [Unknown]
  - Adverse drug reaction [Unknown]
  - Dysphagia [Unknown]

NARRATIVE: CASE EVENT DATE: 20160204
